FAERS Safety Report 6108410-1 (Version None)
Quarter: 2009Q1

REPORT INFORMATION
  Report Type: 
  Country: None (occurrence: None)
  Receive Date: 20090309
  Receipt Date: 20090305
  Transmission Date: 20090719
  Serious: Yes (Death, Hospitalization)
  Sender: FDA-Public Use
  Company Number: PHHY2008MX15271

PATIENT
  Age: 78 Year
  Sex: Female

DRUGS (2)
  1. CARBIDOPA,ENTACAPONE,LEVODOPA [Suspect]
     Indication: PARKINSON'S DISEASE
     Dosage: 2 TABLETS, 150/37.5/200 MG PER DAY
     Route: 048
     Dates: start: 20040701
  2. CARBIDOPA,ENTACAPONE,LEVODOPA [Suspect]
     Dosage: 2 TABLETS (150/37.5/200 MG) PER DAY
     Route: 048

REACTIONS (2)
  - BLOOD GLUCOSE INCREASED [None]
  - DIABETIC COMA [None]
